FAERS Safety Report 6438024-5 (Version None)
Quarter: 2009Q4

REPORT INFORMATION
  Report Type: 
  Country: None (occurrence: None)
  Receive Date: 20091112
  Receipt Date: 20091106
  Transmission Date: 20100525
  Serious: Yes (Hospitalization, Disabling)
  Sender: FDA-Public Use
  Company Number: US-MERCK-0910USA03968

PATIENT
  Age: 76 Year
  Sex: Female

DRUGS (5)
  1. ZOCOR [Suspect]
     Route: 048
  2. WELLBUTRIN [Concomitant]
     Route: 065
  3. XANAX [Concomitant]
     Route: 065
  4. LOPRESSOR [Concomitant]
     Route: 065
  5. SULINDAC [Concomitant]
     Route: 065

REACTIONS (5)
  - DISORIENTATION [None]
  - GAIT DISTURBANCE [None]
  - HYPOAESTHESIA ORAL [None]
  - LIP SWELLING [None]
  - URINARY TRACT INFECTION [None]
